FAERS Safety Report 10947848 (Version 1)
Quarter: 2015Q1

REPORT INFORMATION
  Report Type: Report from Study
  Country: US (occurrence: US)
  Receive Date: 20150324
  Receipt Date: 20150324
  Transmission Date: 20150721
  Serious: Yes (Other)
  Sender: FDA-Public Use
  Company Number: US-ROCHE-1553700

PATIENT

DRUGS (3)
  1. BENDAMUSTINE [Suspect]
     Active Substance: BENDAMUSTINE
     Indication: B-CELL LYMPHOMA
     Dosage: DAYS 1, 2
     Route: 042
  2. RITUXIMAB [Suspect]
     Active Substance: RITUXIMAB
     Indication: B-CELL LYMPHOMA
     Dosage: ON DAY ONE OF EACH CYCLE
     Route: 042
  3. LENALIDOMIDE [Suspect]
     Active Substance: LENALIDOMIDE
     Indication: B-CELL LYMPHOMA
     Dosage: ESCALATING FROM 5 MG TO 20 MG DAILY, 21/28 DAYS FOR SIX CYCLES, FOLLOWED BY 6 MONTHS
     Route: 048

REACTIONS (10)
  - Febrile neutropenia [Unknown]
  - Anaemia [Unknown]
  - Infection [Unknown]
  - Pulmonary embolism [Unknown]
  - Dizziness [Unknown]
  - Nausea [Unknown]
  - Neutropenia [Unknown]
  - Hyperuricaemia [Unknown]
  - Fatigue [Unknown]
  - Thrombocytopenia [Unknown]
